FAERS Safety Report 4908515-4 (Version None)
Quarter: 2006Q1

REPORT INFORMATION
  Report Type: 
  Country: None (occurrence: None)
  Receive Date: 20060210
  Receipt Date: 20050815
  Transmission Date: 20060701
  Serious: No
  Sender: FDA-Public Use
  Company Number: US-GLAXOSMITHKLINE-A0570225A

PATIENT
  Age: 28 Year
  Sex: Female

DRUGS (4)
  1. PAXIL CR [Suspect]
     Dosage: 75MG PER DAY
     Route: 048
     Dates: start: 20050801
  2. VALIUM [Concomitant]
  3. DARVOCET [Concomitant]
  4. FLEXERIL [Concomitant]

REACTIONS (3)
  - ANXIETY [None]
  - DRUG INEFFECTIVE [None]
  - ILLUSION [None]
